FAERS Safety Report 8158414-2 (Version None)
Quarter: 2012Q1

REPORT INFORMATION
  Report Type: 
  Country: None (occurrence: None)
  Receive Date: 20120223
  Receipt Date: 20120213
  Transmission Date: 20120608
  Serious: Yes (Death)
  Sender: FDA-Public Use
  Company Number: JP-JNJFOC-20120206904

PATIENT
  Sex: Male
  Weight: 58 kg

DRUGS (27)
  1. METHOTREXATE [Suspect]
     Route: 048
     Dates: start: 20120223
  2. SOLETON [Concomitant]
     Indication: RHEUMATOID ARTHRITIS
     Dosage: 80 MG IS THE DOSE FOR ONE TREATMENT
     Route: 048
     Dates: start: 20091116
  3. FOLIC ACID [Concomitant]
     Indication: PROPHYLAXIS
     Route: 048
     Dates: start: 20091116
  4. ZANTAC [Concomitant]
     Indication: GASTROINTESTINAL DISORDER THERAPY
     Dosage: 150 MG IS THE DOSE FOR ONE TREATMENT
     Route: 048
     Dates: start: 20100104
  5. MAGMITT [Concomitant]
     Dosage: 660 MG IS THE DOSE FOR ONE TREATMENT
     Route: 048
     Dates: start: 20111226
  6. REMICADE [Suspect]
     Route: 042
     Dates: start: 20100419
  7. REMICADE [Suspect]
     Route: 042
     Dates: start: 20100222
  8. REMICADE [Suspect]
     Indication: RHEUMATOID ARTHRITIS
     Route: 042
     Dates: start: 20091116
  9. REMICADE [Suspect]
     Route: 042
     Dates: start: 20100614
  10. METHYCOBAL [Concomitant]
     Dosage: 500 MCG IS THE DOSE FOR ONE TREATMENT
     Route: 048
     Dates: start: 20091116
  11. REMICADE [Suspect]
     Route: 042
     Dates: start: 20111031
  12. REMICADE [Suspect]
     Route: 042
     Dates: start: 20101129
  13. REMICADE [Suspect]
     Route: 042
     Dates: start: 20110516
  14. REMICADE [Suspect]
     Route: 042
     Dates: start: 20110314
  15. REMICADE [Suspect]
     Route: 042
     Dates: start: 20101004
  16. REMICADE [Suspect]
     Route: 042
     Dates: start: 20110905
  17. METHOTREXATE [Suspect]
     Route: 048
     Dates: start: 20120105, end: 20120222
  18. BREDININ [Suspect]
     Indication: RHEUMATOID ARTHRITIS
     Dosage: 50 MG IS THE DOSE FOR ONE TREATMENT
     Route: 048
     Dates: start: 20091116
  19. SELBEX [Concomitant]
     Indication: GASTROINTESTINAL DISORDER THERAPY
     Dosage: 50 MG IS THE DOSE FOR ONE TREATMENT
     Route: 048
     Dates: start: 20091116
  20. JU-KAMA [Concomitant]
     Dosage: 0.5 G IS THE DOSE FOR ONE TREATMENT
     Route: 048
     Dates: start: 20110711, end: 20111225
  21. REMICADE [Suspect]
     Route: 042
     Dates: start: 20111226
  22. REMICADE [Suspect]
     Route: 042
     Dates: start: 20110711
  23. RIMATIL [Suspect]
     Indication: RHEUMATOID ARTHRITIS
     Dosage: 100 MG IS THE DOSE FOR ONE TREATMENT
     Route: 048
     Dates: start: 20091116
  24. PREDNISOLONE [Concomitant]
     Indication: RHEUMATOID ARTHRITIS
     Route: 048
     Dates: start: 20091116
  25. REMICADE [Suspect]
     Route: 042
     Dates: start: 20110124
  26. REMICADE [Suspect]
     Route: 042
     Dates: start: 20100809
  27. METHOTREXATE [Suspect]
     Indication: RHEUMATOID ARTHRITIS
     Route: 048
     Dates: start: 20091116, end: 20120104

REACTIONS (3)
  - ACUTE RESPIRATORY FAILURE [None]
  - INTERSTITIAL LUNG DISEASE [None]
  - PNEUMONIA BACTERIAL [None]
